FAERS Safety Report 8292243-4 (Version None)
Quarter: 2012Q2

REPORT INFORMATION
  Report Type: 
  Country: None (occurrence: None)
  Receive Date: 20120417
  Receipt Date: 20120411
  Transmission Date: 20120825
  Serious: Yes (Hospitalization)
  Sender: FDA-Public Use
  Company Number: PR-ABBOTT-12P-131-0915754-00

PATIENT
  Sex: Female
  Weight: 58.112 kg

DRUGS (6)
  1. HUMIRA [Suspect]
     Indication: RHEUMATOID ARTHRITIS
     Route: 058
     Dates: start: 20120328
  2. NEURONTIN [Concomitant]
     Indication: FIBROMYALGIA
     Route: 048
     Dates: start: 20070101
  3. KLONOPIN [Concomitant]
     Indication: DEPRESSION
     Dosage: 1/2 TABLET IN MORNING AND 1 TABLET IN EVENING
     Route: 048
     Dates: start: 19960101
  4. AMBIEN [Concomitant]
     Indication: DEPRESSION
     Route: 048
     Dates: start: 20110101
  5. HUMIRA [Suspect]
     Indication: CROHN'S DISEASE
     Route: 058
     Dates: start: 20110101, end: 20120314
  6. ALTACE [Concomitant]
     Indication: HYPERTENSION
     Route: 048
     Dates: start: 20110101

REACTIONS (2)
  - WHITE BLOOD CELL COUNT INCREASED [None]
  - CROHN'S DISEASE [None]
